FAERS Safety Report 18977781 (Version 3)
Quarter: 2024Q1

REPORT INFORMATION
  Report Type: Spontaneous
  Country: US (occurrence: US)
  Receive Date: 20210306
  Receipt Date: 20240205
  Transmission Date: 20240410
  Serious: Yes (Hospitalization, Disabling, Other)
  Sender: FDA-Public Use
  Company Number: US-ORGANON-O2103USA000525

PATIENT
  Sex: Female
  Weight: 91.61 kg

DRUGS (2)
  1. SINGULAIR [Suspect]
     Active Substance: MONTELUKAST SODIUM
     Indication: Hypersensitivity
     Dosage: TOOK 1 TABLET, PO, QHS
     Route: 048
     Dates: start: 2008, end: 2012
  2. SINGULAIR [Suspect]
     Active Substance: MONTELUKAST SODIUM
     Indication: Asthma
     Dosage: 10 MILLIGRAM
     Route: 048
     Dates: start: 2012, end: 2021

REACTIONS (34)
  - Suicide attempt [Unknown]
  - Suicide attempt [Unknown]
  - Suicidal ideation [Recovered/Resolved]
  - Knee arthroplasty [Unknown]
  - Post-traumatic stress disorder [Unknown]
  - Psychotic disorder [Unknown]
  - Psychiatric symptom [Unknown]
  - Neuropsychological symptoms [Not Recovered/Not Resolved]
  - Self-injurious ideation [Recovered/Resolved]
  - Intentional self-injury [Unknown]
  - Tic [Recovered/Resolved]
  - Dysphemia [Not Recovered/Not Resolved]
  - Tremor [Recovered/Resolved]
  - Depression [Recovering/Resolving]
  - Limb injury [Unknown]
  - Hallucination, auditory [Unknown]
  - Seizure [Unknown]
  - Hallucination, visual [Unknown]
  - Irritability [Unknown]
  - Anxiety [Unknown]
  - Paranoia [Unknown]
  - Panic attack [Unknown]
  - Nightmare [Unknown]
  - Homicidal ideation [Unknown]
  - Asthenia [Unknown]
  - Fatigue [Unknown]
  - Personality disorder [Unknown]
  - Rhinitis allergic [Unknown]
  - Migraine [Unknown]
  - Self esteem decreased [Unknown]
  - Feelings of worthlessness [Unknown]
  - Feeling of despair [Unknown]
  - Pain [Unknown]
  - Insomnia [Unknown]

NARRATIVE: CASE EVENT DATE: 20080101
